FAERS Safety Report 18712506 (Version 1)
Quarter: 2021Q1

REPORT INFORMATION
  Report Type: Spontaneous
  Country: DK (occurrence: DK)
  Receive Date: 20210107
  Receipt Date: 20210107
  Transmission Date: 20210419
  Serious: Yes (Other)
  Sender: FDA-Public Use
  Company Number: DK-TEVA-2021-DK-1865934

PATIENT
  Age: 79 Year
  Sex: Female

DRUGS (5)
  1. PREDNISOLONE. [Suspect]
     Active Substance: PREDNISOLONE
     Indication: POLYMYALGIA RHEUMATICA
     Dosage: DOSAGE: VARIATION FROM 37,5 MG DAILY TO 1.25 EVERY OTHER DAY, PAUSED FROM 01?DEC?2016?12?JUN?2017
     Route: 048
     Dates: start: 20141031, end: 202009
  2. FOLIMET [Concomitant]
     Active Substance: FOLIC ACID
     Indication: ADVERSE DRUG REACTION
     Dosage: 10 MG
     Route: 048
     Dates: start: 20190319
  3. METHOTREXATE. [Concomitant]
     Active Substance: METHOTREXATE
     Indication: MYALGIA
     Dosage: DOSAGE: 7.5 MG WEEKLY FOLLOWED BY 15 MG WEEKLY.
     Route: 048
     Dates: start: 20190319, end: 20191023
  4. ALENDRONAT [Concomitant]
     Active Substance: ALENDRONATE SODIUM
     Indication: OSTEOPENIA
     Dosage: 70 MG
     Route: 048
     Dates: start: 20150417
  5. VITAMIN D [Concomitant]
     Active Substance: VITAMIN D NOS
     Indication: PRODUCT USED FOR UNKNOWN INDICATION
     Dates: start: 20150508

REACTIONS (14)
  - Muscle spasms [Unknown]
  - Asthenia [Unknown]
  - Skin atrophy [Unknown]
  - Swelling face [Unknown]
  - Myalgia [Unknown]
  - Dizziness [Unknown]
  - Hypertension [Unknown]
  - Dry mouth [Unknown]
  - Piloerection [Unknown]
  - Cushingoid [Unknown]
  - Alopecia [Unknown]
  - Discomfort [Unknown]
  - Cataract [Unknown]
  - Muscular weakness [Unknown]
